FAERS Safety Report 6205008-1 (Version None)
Quarter: 2009Q2

REPORT INFORMATION
  Report Type: 
  Country: None (occurrence: None)
  Receive Date: 20090527
  Receipt Date: 20090216
  Transmission Date: 20091009
  Serious: No
  Sender: FDA-Public Use
  Company Number: US-ABBOTT-09P-163-0557649-00

PATIENT
  Sex: Female
  Weight: 72.64 kg

DRUGS (6)
  1. SIMCOR [Suspect]
     Indication: HIGH DENSITY LIPOPROTEIN DECREASED
     Dosage: 500/20 MG DAILY
     Route: 048
     Dates: start: 20090126
  2. TENORMIN [Concomitant]
     Indication: HYPERTENSION
     Route: 048
  3. TENORMIN [Concomitant]
     Route: 048
  4. ESTRATEST [Concomitant]
     Indication: HYSTERECTOMY
     Dosage: 0.625/125 MG EVERY 1-2 DAYS
     Route: 048
  5. ESTRATEST [Concomitant]
     Dosage: 0.625/125 MG
     Route: 048
  6. DOXYCYCLINE [Concomitant]
     Indication: ROSACEA

REACTIONS (7)
  - FLUSHING [None]
  - HEADACHE [None]
  - HYPERTENSION [None]
  - JOINT SWELLING [None]
  - NAUSEA [None]
  - PALPITATIONS [None]
  - WEIGHT LOSS POOR [None]
